FAERS Safety Report 7214769-4 (Version None)
Quarter: 2011Q1

REPORT INFORMATION
  Report Type: 
  Country: None (occurrence: None)
  Receive Date: 20110104
  Receipt Date: 20110104
  Transmission Date: 20110831
  Serious: Yes (Life-Threatening)
  Sender: FDA-Public Use
  Company Number: None

PATIENT
  Sex: Female
  Weight: 85.9 kg

DRUGS (2)
  1. AMIODARONE HCL [Suspect]
     Dosage: 400MG BID PO
     Route: 048
  2. AMIODARONE HCL [Suspect]
     Indication: ATRIAL FIBRILLATION
     Dosage: 150MG ONCE IV BOLUS
     Route: 040
     Dates: start: 20100523, end: 20100528

REACTIONS (1)
  - AGRANULOCYTOSIS [None]
